FAERS Safety Report 6081444 (Version 2)
Quarter: 2012Q4

REPORT INFORMATION
  Report Type: Spontaneous
  Country: IT (occurrence: None)
  Receive Date: 20060629
  Receipt Date: 20120905
  Transmission Date: 20130627
  Serious: Yes (Other)
  Sender: FDA-Public Use
  Company Number: 2006RR-02670

PATIENT
  Age: 72 Year
  Sex: Male

DRUGS (1)
  1. ZESTRIL [Suspect]
     Indication: HYPERTENSION

REACTIONS (4)
  - Drug eruption [None]
  - Inflammation [None]
  - Perivascular dermatitis [None]
  - Parakeratosis [None]
